FAERS Safety Report 6011676-X (Version None)
Quarter: 2008Q4

REPORT INFORMATION
  Report Type: 
  Country: None (occurrence: None)
  Receive Date: 20081218
  Receipt Date: 19880210
  Transmission Date: 20090506
  Serious: Yes (Death, Hospitalization, Other)
  Sender: FDA-Public Use
  Company Number: IT-ROCHE-880700010001

PATIENT
  Age: 17 Year
  Sex: Female

DRUGS (2)
  1. ROFERON-A [Suspect]
     Indication: CHRONIC HEPATITIS
     Route: 030
     Dates: start: 19870423, end: 19870429
  2. ROFERON-A [Suspect]
     Route: 030
     Dates: start: 19870430, end: 19870714

REACTIONS (2)
  - AUTOIMMUNE HEPATITIS [None]
  - DISEASE PROGRESSION [None]
